FAERS Safety Report 19835335 (Version 1)
Quarter: 2021Q3

REPORT INFORMATION
  Report Type: Spontaneous
  Country: DE (occurrence: DE)
  Receive Date: 20210915
  Receipt Date: 20210915
  Transmission Date: 20211014
  Serious: Yes (Hospitalization)
  Sender: FDA-Public Use
  Company Number: DE-ACCORD-238379

PATIENT
  Age: 66 Year
  Sex: Male
  Weight: 55 kg

DRUGS (15)
  1. FLUOROURACIL. [Suspect]
     Active Substance: FLUOROURACIL
     Indication: PRODUCT USED FOR UNKNOWN INDICATION
     Dosage: 2400 MG, IN 48H, SOLUTION FOR INJECTION / INFUSION
     Route: 042
  2. BUPRENORPHINE. [Concomitant]
     Active Substance: BUPRENORPHINE
     Dosage: 52.5 MICROGRAM / H, CHANGE EVERY 4 DAYS, TRANSDERMAL PATCH
     Route: 062
  3. ACETYLSALICYLIC ACID [Concomitant]
     Active Substance: ASPIRIN
     Dosage: 100 MG, 0?1?0?0, TABLETS
     Route: 048
  4. FOLINIC ACID [Concomitant]
     Active Substance: LEUCOVORIN
     Dosage: 200 MG, IN 30MIN, SOLUTION FOR INJECTION / INFUSION
     Route: 042
  5. OXYCODONE [Concomitant]
     Active Substance: OXYCODONE
     Dosage: 10 MG, 1?0?1?0, TABLETS
     Route: 048
  6. ATORVASTATIN [Concomitant]
     Active Substance: ATORVASTATIN
     Dosage: 80 MG, 0?0?1?0, TABLETS
     Route: 048
  7. ATROPINE. [Concomitant]
     Active Substance: ATROPINE
     Dosage: 0.5 AMPOULE, SINGLE DOSE, SOLUTION FOR INJECTION / INFUSION
     Route: 058
  8. L?THYROX HEXAL [Concomitant]
     Active Substance: LEVOTHYROXINE SODIUM
     Dosage: 25 MICROGRAM / WEEK, ACCORDING TO THE SCHEME, TABLETS
     Route: 048
  9. METOPROLOL. [Concomitant]
     Active Substance: METOPROLOL
     Dosage: 47.5 MG, 1?0?1?0, TABLETS
     Route: 048
  10. METAMIZOLE SODIUM [Concomitant]
     Active Substance: METAMIZOLE SODIUM
     Dosage: 500 MG, 2?2?2?2, TABLETS
     Route: 048
  11. ONDANSETRON [Concomitant]
     Active Substance: ONDANSETRON
     Dosage: 8 MG, SINGLE DOSE, SOLUTION FOR INJECTION / INFUSION
     Route: 042
  12. PREDNISOLONE. [Concomitant]
     Active Substance: PREDNISOLONE
     Dosage: 50 MG, SINGLE DOSE, SOLUTION FOR INJECTION / INFUSION
     Route: 042
  13. L?THYROX HEXAL [Concomitant]
     Active Substance: LEVOTHYROXINE SODIUM
     Dosage: 50 MICROGRAM, ACCORDING TO THE SCHEME, TABLETS
     Route: 048
  14. IRINOTECAN [Suspect]
     Active Substance: IRINOTECAN
     Indication: PRODUCT USED FOR UNKNOWN INDICATION
     Dosage: 180 MG, IN 1H, SOLUTION FOR INJECTION / INFUSION
     Route: 042
  15. ALANINE/AMINOACETIC ACID/ARGININE HYDROCHLORIDE/ASPARTIC ACID/GLUCOSE/GLUTAMIC ACID/HISTIDINE HYDROC [Concomitant]
     Dosage: 1875 ML, OVERNIGHT, SOLUTION FOR INJECTION / INFUSION
     Route: 042

REACTIONS (3)
  - Diarrhoea [Unknown]
  - Abdominal pain upper [Unknown]
  - Testicular pain [Unknown]
